FAERS Safety Report 20503688 (Version 1)
Quarter: 2022Q1

REPORT INFORMATION
  Report Type: Spontaneous
  Country: US (occurrence: None)
  Receive Date: 20220221
  Receipt Date: 20220221
  Transmission Date: 20220423
  Serious: No
  Sender: FDA-Public Use
  Company Number: None

PATIENT
  Age: 40 Year
  Sex: Female
  Weight: 144 kg

DRUGS (1)
  1. PAXLOVID [Suspect]
     Active Substance: NIRMATRELVIR\RITONAVIR
     Indication: COVID-19
     Dosage: FREQUENCY : TWICE A DAY;?
     Route: 048
     Dates: start: 20220218, end: 20220221

REACTIONS (4)
  - Diarrhoea [None]
  - Dysgeusia [None]
  - Dizziness [None]
  - Balance disorder [None]

NARRATIVE: CASE EVENT DATE: 20220220
